FAERS Safety Report 21794742 (Version 1)
Quarter: 2022Q4

REPORT INFORMATION
  Report Type: Report from Study
  Country: JP (occurrence: JP)
  Receive Date: 20221229
  Receipt Date: 20221229
  Transmission Date: 20230113
  Serious: Yes (Hospitalization)
  Sender: FDA-Public Use
  Company Number: JP-SEATTLE GENETICS-2022SGN12211

PATIENT
  Age: 74 Year
  Sex: Male
  Weight: 49 kg

DRUGS (16)
  1. TUCATINIB [Suspect]
     Active Substance: TUCATINIB
     Indication: Adenocarcinoma gastric
     Dosage: 300 MG, BID
     Route: 048
     Dates: start: 20221102
  2. TRASTUZUMAB [Suspect]
     Active Substance: TRASTUZUMAB
     Indication: Adenocarcinoma gastric
     Dosage: 8 MG/KG, SINGLE
     Route: 042
     Dates: start: 20221102
  3. TRASTUZUMAB [Suspect]
     Active Substance: TRASTUZUMAB
     Dosage: 6 MG/KG, EVERY SUBSEQUENT 21-DAY CYCLE
     Route: 042
  4. OXALIPLATIN [Suspect]
     Active Substance: OXALIPLATIN
     Indication: Adenocarcinoma gastric
     Dosage: 130 MG/M2, Q21D
     Route: 042
     Dates: start: 20221102
  5. CAPECITABINE [Suspect]
     Active Substance: CAPECITABINE
     Indication: Adenocarcinoma gastric
     Dosage: 1000 MG/M2, BID
     Route: 048
     Dates: start: 20221102
  6. PEMBROLIZUMAB [Suspect]
     Active Substance: PEMBROLIZUMAB
     Indication: Adenocarcinoma gastric
     Dosage: 400 MG, DAY 1 OF EACH 42-DAY CYCLE
     Route: 042
     Dates: start: 20221102
  7. ASPIRIN [Concomitant]
     Active Substance: ASPIRIN
     Indication: Prophylaxis
     Dosage: UNK
     Route: 048
     Dates: start: 2012
  8. RUPAFIN [Concomitant]
     Active Substance: RUPATADINE FUMARATE
     Indication: Rhinitis
     Dosage: UNK
     Route: 048
     Dates: start: 2012
  9. ERIZAS [Concomitant]
     Indication: Rhinitis
     Dosage: UNK
     Route: 048
     Dates: start: 2012
  10. CALCIUM CHLORIDE\MALTOSE\POTASSIUM CHLORIDE\SODIUM CHLORIDE\SODIUM LAC [Concomitant]
     Active Substance: CALCIUM CHLORIDE\MALTOSE\POTASSIUM CHLORIDE\SODIUM CHLORIDE\SODIUM LACTATE
     Indication: Dehydration
     Dosage: UNK
     Route: 042
     Dates: start: 20221128
  11. ASCORBIC ACID [Concomitant]
     Active Substance: ASCORBIC ACID
     Indication: Dehydration
     Dosage: UNK
     Route: 042
     Dates: start: 20221128
  12. THIAMINE [Concomitant]
     Active Substance: THIAMINE
     Indication: Dehydration
     Dosage: UNK
     Route: 042
     Dates: start: 20221128
  13. PYRIDOXAL [Concomitant]
     Active Substance: PYRIDOXAL
     Indication: Dehydration
     Dosage: UNK
     Route: 042
     Dates: start: 20221128
  14. HEPARINOID [Concomitant]
     Indication: Prophylaxis
     Dosage: UNK
     Route: 061
     Dates: start: 20221201
  15. URSO [Concomitant]
     Active Substance: URSODIOL
     Indication: Hepatic function abnormal
     Dosage: UNK
     Route: 048
     Dates: start: 20221215
  16. LOPERAMIDE [Concomitant]
     Active Substance: LOPERAMIDE
     Dosage: UNK
     Dates: start: 20221106

REACTIONS (1)
  - Hepatic function abnormal [Not Recovered/Not Resolved]

NARRATIVE: CASE EVENT DATE: 20221223
